FAERS Safety Report 8101020-6 (Version None)
Quarter: 2012Q1

REPORT INFORMATION
  Report Type: 
  Country: None (occurrence: None)
  Receive Date: 20120131
  Receipt Date: 20120127
  Transmission Date: 20120608
  Serious: No
  Sender: FDA-Public Use
  Company Number: US-PFIZER INC-2012023801

PATIENT
  Sex: Female
  Weight: 84 kg

DRUGS (7)
  1. CHANTIX [Suspect]
     Dosage: 0.5 MG, DAILY
     Dates: start: 20111101
  2. GLIPIZIDE [Concomitant]
     Indication: DIABETES MELLITUS
     Dosage: 10 MG, 2X/DAY
  3. CHANTIX [Suspect]
     Dosage: UNK
  4. CHANTIX [Suspect]
     Indication: SMOKING CESSATION THERAPY
     Dosage: 0.5 MG, DAILY FOUR OR FIVE YEARS AGO
  5. METFORMIN [Concomitant]
     Indication: DIABETES MELLITUS
     Dosage: 1000 MG, 2X/DAY
  6. ACETYLSALICYLIC ACID [Concomitant]
     Indication: CARDIAC DISORDER
     Dosage: 81 MG, DAILY
  7. IBUPROFEN [Concomitant]
     Indication: ARTHRITIS
     Dosage: 500 MG, 3X/DAY

REACTIONS (1)
  - DRUG INEFFECTIVE [None]
